FAERS Safety Report 20406824 (Version 1)
Quarter: 2022Q1

REPORT INFORMATION
  Report Type: Other
  Country: JP (occurrence: None)
  Receive Date: 20220131
  Receipt Date: 20220131
  Transmission Date: 20220423
  Serious: Yes (Other)
  Sender: FDA-Public Use
  Company Number: JP-US-Provell Pharmaceuticals LLC-9294905

PATIENT
  Age: 62 Year
  Sex: Female

DRUGS (2)
  1. SOMATROPIN [Suspect]
     Active Substance: SOMATROPIN
     Indication: Growth hormone deficiency
     Dosage: 100 UG OF GH-RELEASING PEPTIDE-2 (GHRP-2)
     Route: 058
  2. LEVOTHYROXINE [Suspect]
     Active Substance: LEVOTHYROXINE
     Indication: Hypothyroidism
     Dosage: 200 MG OF THYROTROPIN RELEASING HORMONE (TRH)
     Route: 048

REACTIONS (3)
  - Endocrine ophthalmopathy [Recovered/Resolved]
  - Hyperthyroidism [Unknown]
  - Basedow^s disease [Unknown]
